FAERS Safety Report 14319454 (Version 1)
Quarter: 2017Q4

REPORT INFORMATION
  Report Type: Spontaneous
  Country: NL (occurrence: NL)
  Receive Date: 20171222
  Receipt Date: 20171222
  Transmission Date: 20180321
  Serious: Yes (Hospitalization, Other)
  Sender: FDA-Public Use
  Company Number: NL-MYLANLABS-2017M1080695

PATIENT
  Age: 62 Year
  Sex: Male

DRUGS (3)
  1. FENTANYL. [Suspect]
     Active Substance: FENTANYL
     Indication: PAIN
     Dosage: UNK UNK, UNKNOWN FREQ.
     Route: 062
  2. ENZALUTAMIDE [Interacting]
     Active Substance: ENZALUTAMIDE
     Indication: HORMONE-REFRACTORY PROSTATE CANCER
     Dosage: UNK, UNKNOWN FREQ.
     Route: 065
  3. DEXAMETHASONE. [Interacting]
     Active Substance: DEXAMETHASONE
     Indication: METASTASES TO BONE
     Route: 065

REACTIONS (5)
  - Cervical vertebral fracture [Unknown]
  - Drug interaction [Unknown]
  - Thoracic vertebral fracture [Unknown]
  - Spinal cord compression [Unknown]
  - Malignant neoplasm progression [Unknown]
